FAERS Safety Report 9613470 (Version 1)
Quarter: 2013Q4

REPORT INFORMATION
  Report Type: Spontaneous
  Country: US (occurrence: US)
  Receive Date: 20131010
  Receipt Date: 20131010
  Transmission Date: 20140711
  Serious: No
  Sender: FDA-Public Use
  Company Number: US-PFIZER INC-2013288836

PATIENT
  Age: 10 Month
  Sex: Female

DRUGS (1)
  1. INFANT ADVIL CONCENTRATED DROPS [Suspect]
     Indication: PYREXIA
     Dosage: 1.8ML ONCE EVERY 4 HOURS
     Dates: start: 20131007

REACTIONS (4)
  - Inappropriate schedule of drug administration [Unknown]
  - Extra dose administered [Unknown]
  - Insomnia [Unknown]
  - Conversion disorder [Unknown]
